FAERS Safety Report 5948322-7 (Version None)
Quarter: 2008Q4

REPORT INFORMATION
  Report Type: 
  Country: None (occurrence: None)
  Receive Date: 20081110
  Receipt Date: 20081110
  Transmission Date: 20090506
  Serious: Yes (Other)
  Sender: FDA-Public Use
  Company Number: None

PATIENT
  Age: 5 Year
  Sex: Male
  Weight: 22.2263 kg

DRUGS (1)
  1. SINGULAIR [Suspect]
     Indication: MULTIPLE ALLERGIES
     Dosage: 5 MG ONCE DAILY PO
     Route: 048
     Dates: start: 20081001, end: 20081109

REACTIONS (6)
  - ABNORMAL BEHAVIOUR [None]
  - ANGER [None]
  - DISTURBANCE IN ATTENTION [None]
  - IMPATIENCE [None]
  - IRRITABILITY [None]
  - RESTLESSNESS [None]
